FAERS Safety Report 5295421-1 (Version None)
Quarter: 2007Q2

REPORT INFORMATION
  Report Type: 
  Country: None (occurrence: None)
  Receive Date: 20070406
  Receipt Date: 20070327
  Transmission Date: 20071010
  Serious: Yes (Hospitalization)
  Sender: FDA-Public Use
  Company Number: 2007BI006830

PATIENT
  Age: 48 Year
  Sex: Female

DRUGS (1)
  1. AVONEX [Suspect]
     Indication: MULTIPLE SCLEROSIS
     Dates: start: 20040305

REACTIONS (4)
  - CARDIAC FAILURE CONGESTIVE [None]
  - CONVULSION [None]
  - HALLUCINATION [None]
  - INCORRECT DOSE ADMINISTERED [None]
